FAERS Safety Report 5647532-6 (Version None)
Quarter: 2008Q1

REPORT INFORMATION
  Report Type: 
  Country: None (occurrence: None)
  Receive Date: 20080131
  Receipt Date: 20071008
  Transmission Date: 20080703
  Serious: No
  Sender: FDA-Public Use
  Company Number: 163-21880-07100474

PATIENT
  Age: 65 Year
  Sex: Male

DRUGS (6)
  1. REVLIMID [Suspect]
     Indication: MULTIPLE MYELOMA
     Dosage: 10 MG, 1 IN 1 D, ORAL ; 5 MG, 1 IN 1  D, ORAL
     Route: 048
     Dates: start: 20070803, end: 20071001
  2. REVLIMID [Suspect]
     Indication: MULTIPLE MYELOMA
     Dosage: 10 MG, 1 IN 1 D, ORAL ; 5 MG, 1 IN 1  D, ORAL
     Route: 048
     Dates: start: 20071011
  3. MEDROL [Concomitant]
  4. BIOCIN (FOSFOMYCIN CALCIUM) [Concomitant]
  5. WARFARIN SODIUM [Concomitant]
  6. ERYTHROMYCIN [Concomitant]

REACTIONS (6)
  - ANAEMIA [None]
  - FATIGUE [None]
  - MALAISE [None]
  - THROMBOCYTOPENIA [None]
  - UNEVALUABLE EVENT [None]
  - WHITE BLOOD CELL COUNT DECREASED [None]
